FAERS Safety Report 19820683 (Version 2)
Quarter: 2021Q3

REPORT INFORMATION
  Report Type: Report from Study
  Country: CA (occurrence: CA)
  Receive Date: 20210913
  Receipt Date: 20210923
  Transmission Date: 20211014
  Serious: Yes (Hospitalization, Other)
  Sender: FDA-Public Use
  Company Number: CA-TAKEDA-2021TUS056397

PATIENT
  Age: 84 Year
  Sex: Male

DRUGS (9)
  1. ASTATIN [Concomitant]
     Active Substance: ATORVASTATIN CALCIUM
     Dosage: UNK
  2. SERTRALINE [Concomitant]
     Active Substance: SERTRALINE HYDROCHLORIDE
     Dosage: UNK
  3. PANTOPRAZOLE [Concomitant]
     Active Substance: PANTOPRAZOLE
     Dosage: UNK
  4. VEDOLIZUMAB [Suspect]
     Active Substance: VEDOLIZUMAB
     Indication: COLITIS ULCERATIVE
     Dosage: 300 MILLIGRAM
     Route: 042
     Dates: start: 20200317
  5. CALCIUM [Concomitant]
     Active Substance: CALCIUM
     Dosage: UNK
  6. RAMIPRIL. [Concomitant]
     Active Substance: RAMIPRIL
     Dosage: UNK
  7. METFORMIN [Concomitant]
     Active Substance: METFORMIN HYDROCHLORIDE
     Dosage: UNK
  8. VEDOLIZUMAB [Suspect]
     Active Substance: VEDOLIZUMAB
     Dosage: 300 MILLIGRAM, Q4WEEKS
     Route: 042
     Dates: start: 20201204
  9. PREGABALIN. [Concomitant]
     Active Substance: PREGABALIN
     Dosage: UNK

REACTIONS (2)
  - Hip fracture [Not Recovered/Not Resolved]
  - Off label use [Unknown]

NARRATIVE: CASE EVENT DATE: 20201204
